FAERS Safety Report 5786661-3 (Version None)
Quarter: 2008Q2

REPORT INFORMATION
  Report Type: 
  Country: None (occurrence: None)
  Receive Date: 20080618
  Receipt Date: 20080610
  Transmission Date: 20081010
  Serious: Yes (Other)
  Sender: FDA-Public Use
  Company Number: A-CH2008-20285

PATIENT
  Age: 70 Year
  Sex: Female

DRUGS (8)
  1. TRACLEER [Suspect]
     Indication: PULMONARY ARTERIAL HYPERTENSION
     Dosage: 62.5 MG, BID, ORAL
     Route: 048
     Dates: start: 20080402, end: 20080417
  2. PRINIVIL [Concomitant]
  3. NORVASC [Concomitant]
  4. WARFARIN SODIUM [Concomitant]
  5. SPAN-K (POTASSIUM CHLORIDE) [Concomitant]
  6. DIGOXIN [Concomitant]
  7. ACTINAL (CYPROHEPTADINE HYDROCHLORIDE) [Concomitant]
  8. METFORMIN HCL [Concomitant]

REACTIONS (7)
  - CREPITATIONS [None]
  - DYSPNOEA [None]
  - INFLUENZA LIKE ILLNESS [None]
  - OEDEMA PERIPHERAL [None]
  - PULMONARY OEDEMA [None]
  - RALES [None]
  - WEIGHT INCREASED [None]
